FAERS Safety Report 11062007 (Version 2)
Quarter: 2015Q2

REPORT INFORMATION
  Report Type: Spontaneous
  Country: US (occurrence: US)
  Receive Date: 20150424
  Receipt Date: 20150518
  Transmission Date: 20150821
  Serious: No
  Sender: FDA-Public Use
  Company Number: US-JNJFOC-20150409777

PATIENT
  Sex: Male
  Weight: 86.18 kg

DRUGS (5)
  1. FLUOXETINE [Concomitant]
     Active Substance: FLUOXETINE\FLUOXETINE HYDROCHLORIDE
     Indication: DEPRESSION
     Route: 065
     Dates: start: 2007
  2. DURAGESIC [Suspect]
     Active Substance: FENTANYL
     Indication: DIABETIC NEUROPATHY
     Route: 062
     Dates: start: 2011, end: 2011
  3. DURAGESIC [Suspect]
     Active Substance: FENTANYL
     Indication: DIABETIC NEUROPATHY
     Route: 062
     Dates: start: 2011
  4. DURAGESIC [Suspect]
     Active Substance: FENTANYL
     Indication: DIABETIC NEUROPATHY
     Route: 062
     Dates: start: 2010
  5. HYDROCODONE [Concomitant]
     Active Substance: HYDROCODONE
     Indication: NEUROPATHY PERIPHERAL
     Dosage: 10-325, 4 TIMES A DAY
     Route: 065
     Dates: start: 2010

REACTIONS (2)
  - Drug ineffective [Unknown]
  - Drug dose omission [Unknown]

NARRATIVE: CASE EVENT DATE: 2011
